FAERS Safety Report 5493339-2 (Version None)
Quarter: 2007Q4

REPORT INFORMATION
  Report Type: 
  Country: None (occurrence: None)
  Receive Date: 20071023
  Receipt Date: 20071016
  Transmission Date: 20080405
  Serious: Yes (Hospitalization, Other)
  Sender: FDA-Public Use
  Company Number: US-ROCHE-503358

PATIENT
  Age: 16 Year
  Sex: Male
  Weight: 97.5 kg

DRUGS (7)
  1. ACCUTANE [Suspect]
     Indication: ACNE
     Route: 048
     Dates: start: 20021121, end: 20030414
  2. ACCUTANE [Suspect]
     Dosage: EVERY MORNING
     Route: 048
     Dates: start: 20021114, end: 20021121
  3. MINOCIN [Concomitant]
     Dosage: DOSE REGIMEN REPORTED AS 75MG-100MG.
     Route: 048
     Dates: start: 20021117
  4. MINOCYCLINE HCL [Concomitant]
  5. TAZORAC [Concomitant]
     Dosage: ^HS^
  6. KLARON [Concomitant]
     Dosage: APPLY TO FACE BID
  7. TRIAZ [Concomitant]
     Dosage: EVERY MORNING

REACTIONS (12)
  - ACNE [None]
  - ANAEMIA [None]
  - BLOOD TRIGLYCERIDES INCREASED [None]
  - COLITIS [None]
  - COLITIS ULCERATIVE [None]
  - CROHN'S DISEASE [None]
  - DRY SKIN [None]
  - EMOTIONAL DISTRESS [None]
  - HIGH DENSITY LIPOPROTEIN DECREASED [None]
  - ILEITIS [None]
  - INFLAMMATORY BOWEL DISEASE [None]
  - LIP DRY [None]
